FAERS Safety Report 18066749 (Version 6)
Quarter: 2021Q4

REPORT INFORMATION
  Report Type: Spontaneous
  Country: US (occurrence: US)
  Receive Date: 20200724
  Receipt Date: 20211206
  Transmission Date: 20220303
  Serious: Yes (Other)
  Sender: FDA-Public Use
  Company Number: US-PFIZER INC-2020091395

PATIENT
  Age: 64 Year
  Sex: Male
  Weight: 72 kg

DRUGS (1)
  1. XELJANZ XR [Suspect]
     Active Substance: TOFACITINIB CITRATE
     Indication: Arthritis reactive
     Dosage: 11 MG, 1X/DAY
     Dates: start: 201912

REACTIONS (12)
  - Pulmonary embolism [Unknown]
  - Thrombosis [Unknown]
  - Pulmonary thrombosis [Unknown]
  - Arthritis reactive [Unknown]
  - Rhinorrhoea [Unknown]
  - Memory impairment [Unknown]
  - Low density lipoprotein increased [Recovering/Resolving]
  - Therapeutic response unexpected [Unknown]
  - High density lipoprotein increased [Unknown]
  - Inflammation [Unknown]
  - Off label use [Unknown]
  - Drug effective for unapproved indication [Unknown]

NARRATIVE: CASE EVENT DATE: 20191201
